FAERS Safety Report 9514692 (Version 1)
Quarter: 2013Q1

REPORT INFORMATION
  Report Type: Spontaneous
  Country: US (occurrence: None)
  Receive Date: 20130305
  Receipt Date: 20130305
  Transmission Date: 20140127
  Serious: Yes (Hospitalization)
  Sender: FDA-Public Use
  Company Number: 163-21880-12090562

PATIENT
  Age: 84 Year
  Sex: Female
  Weight: 68.95 kg

DRUGS (8)
  1. REVLIMID (LENALIDOMIDE) (25 MILLIGRAM, CAPSULES) [Suspect]
     Indication: PLASMA CELL MYELOMA
     Dosage: 25 MG,  21 IN 28 D,  PO
     Route: 048
     Dates: start: 20100112
  2. AMLODIPINE (AMLODIPINE) [Concomitant]
  3. ASPIRIN (ACETYLSALICYLIC ACID) [Concomitant]
  4. DEXAMETHASONE (DEXAMETHASONE) [Concomitant]
  5. LISINOPRIL (LISINOPRIL) [Concomitant]
  6. MVI (MVI) [Concomitant]
  7. VOLTAREN (DICLOFENAC SODIUM) [Concomitant]
  8. WARFARIN (WARFARIN) [Concomitant]

REACTIONS (2)
  - Urinary tract infection [None]
  - Confusional state [None]
